FAERS Safety Report 20751721 (Version 1)
Quarter: 2022Q2

REPORT INFORMATION
  Report Type: Spontaneous
  Country: US (occurrence: US)
  Receive Date: 20220426
  Receipt Date: 20220426
  Transmission Date: 20220721
  Serious: No
  Sender: FDA-Public Use
  Company Number: US-PFIZER INC-202200565937

PATIENT
  Age: 65 Year
  Sex: Female

DRUGS (2)
  1. ZITHROMAX [Suspect]
     Active Substance: AZITHROMYCIN DIHYDRATE
     Dosage: UNK
     Dates: start: 20220321
  2. TRILEPTAL [Concomitant]
     Active Substance: OXCARBAZEPINE
     Indication: Bipolar disorder
     Dosage: DOSE WAS DOUBLED FROM 600 TO 1200
     Dates: start: 202201

REACTIONS (5)
  - Asthenia [Unknown]
  - Alanine aminotransferase increased [Unknown]
  - Tinnitus [Unknown]
  - Hepatic steatosis [Unknown]
  - Fatigue [Unknown]

NARRATIVE: CASE EVENT DATE: 20220323
